FAERS Safety Report 15635052 (Version 1)
Quarter: 2018Q4

REPORT INFORMATION
  Report Type: Spontaneous
  Country: HK (occurrence: HK)
  Receive Date: 20181119
  Receipt Date: 20181119
  Transmission Date: 20190205
  Serious: Yes (Hospitalization)
  Sender: FDA-Public Use
  Company Number: HK-ASTRAZENECA-2018SF49993

PATIENT
  Age: 55 Year
  Sex: Male

DRUGS (3)
  1. NORVAC [Concomitant]
     Active Substance: AMLODIPINE BESYLATE
  2. TRAJENTA [Concomitant]
     Active Substance: LINAGLIPTIN
  3. FORXIGA [Suspect]
     Active Substance: DAPAGLIFLOZIN
     Indication: TYPE 2 DIABETES MELLITUS
     Route: 048

REACTIONS (1)
  - Hyponatraemia [Unknown]
